FAERS Safety Report 7835751-X (Version None)
Quarter: 2011Q4

REPORT INFORMATION
  Report Type: 
  Country: None (occurrence: None)
  Receive Date: 20111024
  Receipt Date: 20111013
  Transmission Date: 20120403
  Serious: Yes (Hospitalization, Other)
  Sender: FDA-Public Use
  Company Number: JP-PFIZER INC-2011227161

PATIENT
  Age: 77 Year
  Sex: Female
  Weight: 52 kg

DRUGS (16)
  1. CELECOXIB [Suspect]
     Indication: RHEUMATOID ARTHRITIS
     Dosage: 200 MG, DAILY
     Route: 048
     Dates: start: 20080401, end: 20101228
  2. INDOMETACIN [Concomitant]
     Indication: MUSCULOSKELETAL PAIN
  3. PREDNISOLONE [Concomitant]
     Indication: RHEUMATOID ARTHRITIS
     Dosage: UNK
     Dates: start: 20040901
  4. ZANTAC [Concomitant]
     Dosage: UNK
     Dates: start: 20070723
  5. FOLIC ACID [Concomitant]
     Dosage: UNK
     Dates: start: 20070812
  6. ELCITONIN [Concomitant]
     Indication: OSTEOPOROSIS
     Dosage: UNK
     Dates: start: 19990223
  7. NIVADIL [Concomitant]
     Dosage: UNK
     Dates: start: 19980713
  8. PROGRAF [Concomitant]
     Indication: RHEUMATOID ARTHRITIS
     Dosage: UNK
     Dates: start: 20090203
  9. SOLIFENACIN [Concomitant]
     Indication: HYPERTONIC BLADDER
     Dosage: UNK
     Dates: start: 20091222
  10. TEPRENONE [Concomitant]
     Dosage: UNK
     Dates: start: 19990216
  11. RISEDRONATE SODIUM [Concomitant]
     Indication: OSTEOPOROSIS
     Dosage: UNK
     Dates: start: 20070821
  12. FELBINAC [Concomitant]
     Indication: RHEUMATOID ARTHRITIS
     Dosage: UNK
     Dates: start: 20040406
  13. ONE-ALPHA [Concomitant]
     Dosage: UNK
     Dates: start: 19990518
  14. MAGMITT [Concomitant]
     Indication: CONSTIPATION
     Dosage: UNK
     Dates: start: 20091222
  15. RHEUMATREX [Suspect]
     Indication: RHEUMATOID ARTHRITIS
     Dosage: 6 MG WEEKLY
     Route: 048
     Dates: start: 19990817
  16. LOSARTAN POTASSIUM [Concomitant]
     Dosage: UNK
     Dates: start: 20021120

REACTIONS (1)
  - INTERSTITIAL LUNG DISEASE [None]
